FAERS Safety Report 25277375 (Version 1)
Quarter: 2025Q2

REPORT INFORMATION
  Report Type: Spontaneous
  Country: GR (occurrence: GR)
  Receive Date: 20250507
  Receipt Date: 20250507
  Transmission Date: 20250716
  Serious: Yes (Hospitalization, Other)
  Sender: ACCORD
  Company Number: GR-EMA-DD-20250403-7482701-075355

PATIENT
  Age: 54 Year
  Sex: Female

DRUGS (7)
  1. CAPECITABINE [Suspect]
     Active Substance: CAPECITABINE
     Indication: HER2 positive breast cancer
  2. XGEVA [Suspect]
     Active Substance: DENOSUMAB
     Indication: Metastases to spine
  3. BEVACIZUMAB [Suspect]
     Active Substance: BEVACIZUMAB
     Indication: HER2 positive breast cancer
  4. LEVETIRACETAM [Concomitant]
     Active Substance: LEVETIRACETAM
  5. OLANZAPINE [Concomitant]
     Active Substance: OLANZAPINE
  6. SAMARIUM SM-153 LEXIDRONAM [Concomitant]
     Active Substance: SAMARIUM SM-153 LEXIDRONAM
     Dates: start: 201703
  7. ACETAMINOPHEN [Concomitant]
     Active Substance: ACETAMINOPHEN

REACTIONS (9)
  - Breast cancer metastatic [Unknown]
  - Metastases to lung [Unknown]
  - Metastases to liver [Unknown]
  - Metastases to central nervous system [Unknown]
  - Metastases to meninges [Unknown]
  - Abdominal hernia [Recovering/Resolving]
  - Ileus [Recovering/Resolving]
  - Thrombocytopenia [Recovering/Resolving]
  - Cancer pain [Unknown]

NARRATIVE: CASE EVENT DATE: 20181001
